FAERS Safety Report 8597722-8 (Version None)
Quarter: 2012Q3

REPORT INFORMATION
  Report Type: 
  Country: None (occurrence: None)
  Receive Date: 20120816
  Receipt Date: 20120808
  Transmission Date: 20120928
  Serious: Yes (Hospitalization, Other)
  Sender: FDA-Public Use
  Company Number: PHHY2012FR067148

PATIENT
  Age: 48 Year
  Sex: Male

DRUGS (3)
  1. PREDNISOLONE [Concomitant]
     Dosage: 10 MG, QD
  2. NEORAL [Suspect]
     Indication: LIVER TRANSPLANT
     Dosage: 300 MG, BID
     Dates: start: 20120401
  3. CELLCEPT [Concomitant]
     Dosage: 500 MG, TID

REACTIONS (4)
  - RENAL FAILURE [None]
  - HALLUCINATION, VISUAL [None]
  - OVERDOSE [None]
  - DYSPHAGIA [None]
